FAERS Safety Report 10045702 (Version 2)
Quarter: 2014Q2

REPORT INFORMATION
  Report Type: Report from Study
  Country: US (occurrence: US)
  Receive Date: 20140328
  Receipt Date: 20140417
  Transmission Date: 20141212
  Serious: Yes (Other)
  Sender: FDA-Public Use
  Company Number: US-ACTELION-A-US2014-96404

PATIENT
  Age: 65 Year
  Sex: Female

DRUGS (2)
  1. MACITENTAN [Suspect]
     Indication: PULMONARY ARTERIAL HYPERTENSION
     Dosage: 10 MG, QD
     Route: 048
     Dates: start: 20140225
  2. TYVASO [Concomitant]

REACTIONS (6)
  - Pulmonary mass [Recovered/Resolved]
  - Chest pain [Recovered/Resolved]
  - Vasodilatation [Unknown]
  - Muscular weakness [Unknown]
  - Pain in extremity [Unknown]
  - Condition aggravated [Unknown]
